FAERS Safety Report 7525489-0 (Version None)
Quarter: 2011Q2

REPORT INFORMATION
  Report Type: 
  Country: None (occurrence: None)
  Receive Date: 20110526
  Receipt Date: 20110511
  Transmission Date: 20111010
  Serious: Yes (Disabling)
  Sender: FDA-Public Use
  Company Number: 2011MA005921

PATIENT
  Age: 63 Year
  Sex: Female

DRUGS (6)
  1. SIMVASTATIN [Concomitant]
  2. MIRTAZAPINE [Concomitant]
  3. FLUOXETINE [Suspect]
     Indication: DEPRESSION
     Dosage: 20 MG;QD;PO
     Route: 048
     Dates: start: 20110222, end: 20110415
  4. ESOMEPRAZOLE MAGNESIUM [Concomitant]
  5. VOLTAREN [Concomitant]
  6. CODEINE SULFATE [Concomitant]

REACTIONS (6)
  - THROAT TIGHTNESS [None]
  - FATIGUE [None]
  - ALLERGY TO ANIMAL [None]
  - PAIN [None]
  - HEADACHE [None]
  - HYPERSENSITIVITY [None]
